FAERS Safety Report 6492037-6 (Version None)
Quarter: 2009Q4

REPORT INFORMATION
  Report Type: 
  Country: None (occurrence: None)
  Receive Date: 20091208
  Receipt Date: 20091124
  Transmission Date: 20100525
  Serious: Yes (Hospitalization)
  Sender: FDA-Public Use
  Company Number: 002223

PATIENT
  Sex: Female
  Weight: 63 kg

DRUGS (4)
  1. VIMPAT [Suspect]
     Indication: EPILEPSY
     Dosage: (100 MG BID ORAL), (50 MG BID ORAL), (50 MG)
     Route: 048
     Dates: start: 20091003
  2. VIMPAT [Suspect]
     Indication: EPILEPSY
     Dosage: (100 MG BID ORAL), (50 MG BID ORAL), (50 MG)
     Route: 048
     Dates: start: 20091028
  3. VIMPAT [Suspect]
     Indication: EPILEPSY
     Dosage: (100 MG BID ORAL), (50 MG BID ORAL), (50 MG)
     Route: 048
     Dates: start: 20091031
  4. GABAPENTIN [Concomitant]

REACTIONS (3)
  - ANXIETY DISORDER [None]
  - GRAND MAL CONVULSION [None]
  - SLEEP DISORDER [None]
